FAERS Safety Report 26077120 (Version 2)
Quarter: 2025Q4

REPORT INFORMATION
  Report Type: Spontaneous
  Country: US (occurrence: US)
  Receive Date: 20251121
  Receipt Date: 20251127
  Transmission Date: 20260118
  Serious: Yes (Other)
  Sender: PFIZER
  Company Number: US-PFIZER INC-202500226100

PATIENT
  Age: 82 Year
  Sex: Female

DRUGS (1)
  1. METHYLPREDNISOLONE [Suspect]
     Active Substance: METHYLPREDNISOLONE
     Dosage: I HAVE TO CUT 4 MG IN HALF AND TO SAY THE LEAST NOT EASY

REACTIONS (1)
  - Plasma cell myeloma [Unknown]
